FAERS Safety Report 9886238 (Version 1)
Quarter: 2014Q1

REPORT INFORMATION
  Report Type: Spontaneous
  Country: HU (occurrence: HU)
  Receive Date: 20140210
  Receipt Date: 20140210
  Transmission Date: 20141002
  Serious: Yes (Hospitalization)
  Sender: FDA-Public Use
  Company Number: US-ASTRAZENECA-2014SE08860

PATIENT
  Age: 7 Month
  Sex: Female

DRUGS (2)
  1. SYNAGIS [Suspect]
     Indication: ANTIVIRAL PROPHYLAXIS
     Dosage: SYNAGIS DOSE BASED ON BODY WEIGHT, FREQUENCY: MONTHLY
     Route: 030
     Dates: start: 20131122
  2. SYNAGIS [Suspect]
     Indication: ANTIVIRAL PROPHYLAXIS
     Dosage: SYNAGIS DOSE BASED ON BODY WEIGHT, FREQUENCY: MONTHLY
     Route: 030
     Dates: start: 20140114

REACTIONS (2)
  - Lymphadenopathy [Recovering/Resolving]
  - Pyrexia [Recovering/Resolving]
